FAERS Safety Report 8604756-3 (Version None)
Quarter: 2012Q3

REPORT INFORMATION
  Report Type: 
  Country: None (occurrence: None)
  Receive Date: 20120820
  Receipt Date: 20120809
  Transmission Date: 20120928
  Serious: Yes (Hospitalization, Other)
  Sender: FDA-Public Use
  Company Number: US-JNJFOC-20100805115

PATIENT
  Sex: Male

DRUGS (6)
  1. COLACE [Suspect]
     Indication: PRODUCT USED FOR UNKNOWN INDICATION
     Route: 065
  2. LEVAQUIN [Suspect]
     Indication: KIDNEY INFECTION
     Route: 048
     Dates: start: 20060101, end: 20060101
  3. LEVAQUIN [Suspect]
     Indication: URINARY TRACT INFECTION
     Route: 048
  4. LEVAQUIN [Suspect]
     Indication: PHARYNGITIS STREPTOCOCCAL
     Route: 048
     Dates: start: 20060101, end: 20060101
  5. LEVAQUIN [Suspect]
     Indication: BRONCHITIS
     Route: 048
     Dates: start: 20060101, end: 20060101
  6. LEVAQUIN [Suspect]
     Route: 048

REACTIONS (7)
  - PANIC DISORDER [None]
  - SUICIDAL IDEATION [None]
  - POST-TRAUMATIC STRESS DISORDER [None]
  - ROTATOR CUFF SYNDROME [None]
  - SUICIDE ATTEMPT [None]
  - MAJOR DEPRESSION [None]
  - DIARRHOEA [None]
